FAERS Safety Report 9564865 (Version 2)
Quarter: 2014Q2

REPORT INFORMATION
  Report Type: Spontaneous
  Country: IT (occurrence: IT)
  Receive Date: 20130930
  Receipt Date: 20140423
  Transmission Date: 20141212
  Serious: Yes (Disabling)
  Sender: FDA-Public Use
  Company Number: PHHY2013IT108098

PATIENT
  Age: 82 Year
  Sex: Female

DRUGS (8)
  1. ZOMETA [Suspect]
     Indication: PLASMA CELL MYELOMA
     Dosage: 1 DF, MONTHLY
     Route: 042
     Dates: start: 20120201, end: 20130401
  2. TOLEP [Concomitant]
     Dosage: UNK UKN, UNK
     Dates: start: 2006
  3. CARDURA [Concomitant]
     Dosage: 1 DF, UNK
  4. PANTORC [Concomitant]
     Dosage: 20 MG, UNK
  5. TORVAST [Concomitant]
     Dosage: 20 MG, UNK
  6. CARDIOASPIRIN [Concomitant]
     Dosage: 1 DF, UNK
  7. DIURESIX [Concomitant]
     Dosage: 1 DF, UNK
  8. LEXOTAN [Concomitant]
     Dosage: UNK UKN, UNK

REACTIONS (2)
  - Osteonecrosis of jaw [Not Recovered/Not Resolved]
  - Exposed bone in jaw [Unknown]
